FAERS Safety Report 19973489 (Version 1)
Quarter: 2021Q4

REPORT INFORMATION
  Report Type: Spontaneous
  Country: US (occurrence: US)
  Receive Date: 20211019
  Receipt Date: 20211019
  Transmission Date: 20220303
  Serious: Yes (Death)
  Sender: FDA-Public Use
  Company Number: None

PATIENT
  Age: 76 Year
  Sex: Male

DRUGS (2)
  1. MYCOPHENOLIC ACID [Suspect]
     Active Substance: MYCOPHENOLIC ACID
     Indication: Renal transplant
     Dosage: ?          OTHER DOSE:2 CAPSULES;
     Route: 048
     Dates: start: 20140711, end: 20211012
  2. TACROLIMUS [Suspect]
     Active Substance: TACROLIMUS
     Indication: Renal transplant
     Dosage: ?          OTHER DOSE:1 CAPSULES;
     Route: 048
     Dates: start: 20140711, end: 20211012

REACTIONS (1)
  - Death [None]

NARRATIVE: CASE EVENT DATE: 20211012
